FAERS Safety Report 6168930-0 (Version None)
Quarter: 2009Q2

REPORT INFORMATION
  Report Type: 
  Country: None (occurrence: None)
  Receive Date: 20090427
  Receipt Date: 20090417
  Transmission Date: 20091009
  Serious: Yes (Other)
  Sender: FDA-Public Use
  Company Number: PHHY2009GB12049

PATIENT
  Sex: Female
  Weight: 54 kg

DRUGS (5)
  1. FEMARA [Suspect]
     Indication: BREAST CANCER
     Route: 048
  2. ASPIRIN [Concomitant]
  3. MESALAZINE [Concomitant]
     Indication: COLITIS ULCERATIVE
  4. SIMVASTATIN [Concomitant]
     Indication: HYPERCHOLESTEROLAEMIA
  5. SALAZOPYRIN [Concomitant]
     Indication: COLITIS ULCERATIVE

REACTIONS (4)
  - DISORIENTATION [None]
  - DIZZINESS [None]
  - EPISTAXIS [None]
  - RECTAL HAEMORRHAGE [None]
